FAERS Safety Report 13033161 (Version 1)
Quarter: 2016Q4

REPORT INFORMATION
  Report Type: Spontaneous
  Country: FR (occurrence: US)
  Receive Date: 20161215
  Receipt Date: 20161215
  Transmission Date: 20170207
  Serious: Yes (Other)
  Sender: FDA-Public Use
  Company Number: FR-CIPLA LTD.-2016US23292

PATIENT

DRUGS (2)
  1. METHOTREXATE. [Interacting]
     Active Substance: METHOTREXATE
     Indication: ACUTE LYMPHOCYTIC LEUKAEMIA
     Dosage: 5 G/M^2/24 HOUR
  2. LEVETIRACETAM. [Suspect]
     Active Substance: LEVETIRACETAM
     Indication: METASTASES TO CENTRAL NERVOUS SYSTEM
     Dosage: UNK
     Route: 048

REACTIONS (7)
  - Metastases to central nervous system [Unknown]
  - Renal failure [Unknown]
  - Vomiting [Unknown]
  - Drug interaction [Unknown]
  - Hypertension [Unknown]
  - Drug level increased [Unknown]
  - Blood creatinine increased [Unknown]
